FAERS Safety Report 4851003-4 (Version None)
Quarter: 2005Q4

REPORT INFORMATION
  Report Type: 
  Country: None (occurrence: None)
  Receive Date: 20051212
  Receipt Date: 20051130
  Transmission Date: 20060501
  Serious: Yes (Hospitalization)
  Sender: FDA-Public Use
  Company Number: US-MERCK-0512USA00130

PATIENT
  Age: 77 Year
  Sex: Female
  Weight: 59 kg

DRUGS (10)
  1. VIOXX [Suspect]
     Indication: MONARTHRITIS
     Route: 048
     Dates: start: 19990401, end: 20020225
  2. VIOXX [Suspect]
     Route: 048
     Dates: start: 19990401, end: 20020225
  3. ZOCOR [Concomitant]
     Route: 065
  4. LIPITOR [Concomitant]
     Route: 065
  5. PLAVIX [Concomitant]
     Route: 065
  6. CELEBREX [Concomitant]
     Route: 065
  7. LOTENSIN [Concomitant]
     Route: 065
  8. HYDROCHLOROTHIAZIDE [Concomitant]
     Route: 065
  9. VITAMINS (UNSPECIFIED) [Concomitant]
     Route: 065
  10. ASPIRIN [Concomitant]
     Route: 065

REACTIONS (2)
  - ATRIAL FIBRILLATION [None]
  - CEREBROVASCULAR ACCIDENT [None]
